FAERS Safety Report 10692019 (Version 2)
Quarter: 2015Q2

REPORT INFORMATION
  Report Type: Report from Study
  Country: TR (occurrence: TR)
  Receive Date: 20150106
  Receipt Date: 20150520
  Transmission Date: 20150821
  Serious: Yes (Congenital Anomaly)
  Sender: FDA-Public Use
  Company Number: TR-NOVOPROD-433828

PATIENT
  Sex: Male
  Weight: 3.5 kg

DRUGS (4)
  1. FERRO SANOL [Concomitant]
     Active Substance: FERROUS SULFATE\GLYCINE
     Indication: MINERAL SUPPLEMENTATION
     Dosage: QD
     Route: 064
     Dates: start: 20141016, end: 20141201
  2. NOVOMIX 30 FLEXPEN [Suspect]
     Active Substance: INSULIN ASPART
     Indication: GESTATIONAL DIABETES
     Dosage: 16 U, QD
     Route: 064
     Dates: start: 20141023, end: 20141201
  3. DECAVIT                            /06014801/ [Concomitant]
     Indication: VITAMIN SUPPLEMENTATION
     Dosage: QD
     Route: 064
     Dates: start: 20141009, end: 20141023
  4. TRIBEKSOL [Concomitant]
     Active Substance: CYANOCOBALAMIN\PYRIDOXINE HYDROCHLORIDE\THIAMINE
     Indication: VITAMIN SUPPLEMENTATION
     Dosage: QD
     Route: 064
     Dates: start: 20141022, end: 20141201

REACTIONS (2)
  - Foetal exposure during pregnancy [Recovered/Resolved]
  - Cardiac septal defect [Not Recovered/Not Resolved]

NARRATIVE: CASE EVENT DATE: 20141023
